FAERS Safety Report 18671106 (Version 5)
Quarter: 2025Q1

REPORT INFORMATION
  Report Type: Spontaneous
  Country: US (occurrence: US)
  Receive Date: 20201228
  Receipt Date: 20250205
  Transmission Date: 20250409
  Serious: No
  Sender: PFIZER
  Company Number: US-PFIZER INC-2020506560

PATIENT
  Age: 65 Year
  Sex: Female
  Weight: 74.84 kg

DRUGS (3)
  1. XELJANZ XR [Suspect]
     Active Substance: TOFACITINIB CITRATE
     Indication: Rheumatoid arthritis
     Dosage: 11 MG, 1X/DAY
     Route: 048
  2. AMLODIPINE [Concomitant]
     Active Substance: AMLODIPINE BESYLATE
     Indication: Hypertension
     Dosage: 5 MG, 1X/DAY
     Route: 048
  3. CRESTOR [Concomitant]
     Active Substance: ROSUVASTATIN CALCIUM
     Indication: Blood cholesterol increased
     Dosage: 20 MG, 1X/DAY (AT NIGHT)
     Route: 048

REACTIONS (4)
  - Back pain [Unknown]
  - Fatigue [Unknown]
  - COVID-19 [Unknown]
  - Arthralgia [Unknown]

NARRATIVE: CASE EVENT DATE: 20201207
